FAERS Safety Report 5242653-4 (Version None)
Quarter: 2007Q1

REPORT INFORMATION
  Report Type: 
  Country: None (occurrence: None)
  Receive Date: 20070221
  Receipt Date: 20070214
  Transmission Date: 20070707
  Serious: Yes (Life-Threatening, Hospitalization)
  Sender: FDA-Public Use
  Company Number: GB-ROCHE-482612

PATIENT
  Age: 12 Year
  Sex: Female

DRUGS (6)
  1. ZENAPAX [Suspect]
     Route: 042
     Dates: start: 20070201, end: 20070205
  2. MYCOPHENOLATE MOFETIL [Suspect]
     Route: 048
     Dates: start: 20070201, end: 20070205
  3. TACROLIMUS [Suspect]
     Route: 048
     Dates: start: 20070201, end: 20070205
  4. CEFOTAXIME [Concomitant]
     Dates: start: 20070201
  5. RANITIDINE [Concomitant]
     Dates: start: 20070201
  6. METHYLPREDNISOLONE 16MG TAB [Concomitant]
     Dates: start: 20070201

REACTIONS (1)
  - ACUTE RESPIRATORY DISTRESS SYNDROME [None]
